FAERS Safety Report 11861175 (Version 2)
Quarter: 2015Q4

REPORT INFORMATION
  Report Type: Spontaneous
  Country: US (occurrence: US)
  Receive Date: 20151222
  Receipt Date: 20151230
  Transmission Date: 20160305
  Serious: Yes (Death, Hospitalization, Other)
  Sender: FDA-Public Use
  Company Number: PHHY2015US167274

PATIENT
  Age: 63 Year
  Sex: Male

DRUGS (4)
  1. MYCOPHENOLIC ACID. [Suspect]
     Active Substance: MYCOPHENOLIC ACID
     Indication: IMMUNOSUPPRESSANT DRUG THERAPY
  2. MYCOPHENOLIC ACID. [Suspect]
     Active Substance: MYCOPHENOLIC ACID
     Indication: RENAL TRANSPLANT
     Route: 065
  3. TACROLIMUS. [Suspect]
     Active Substance: TACROLIMUS
     Indication: IMMUNOSUPPRESSANT DRUG THERAPY
  4. TACROLIMUS. [Suspect]
     Active Substance: TACROLIMUS
     Indication: RENAL TRANSPLANT
     Route: 065

REACTIONS (18)
  - Gliosis [Unknown]
  - Hypersomnia [Unknown]
  - Encephalitis protozoal [Unknown]
  - Acanthamoeba infection [Unknown]
  - Necrosis [Unknown]
  - Abscess [Unknown]
  - Unresponsive to stimuli [Unknown]
  - Brain oedema [Unknown]
  - Granuloma [Unknown]
  - Somnolence [Unknown]
  - Death [Fatal]
  - Confusional state [Unknown]
  - Pyrexia [Unknown]
  - Renal impairment [Unknown]
  - Ischaemic stroke [Unknown]
  - Bradycardia [Unknown]
  - Mental status changes [Unknown]
  - Pancytopenia [Unknown]
